FAERS Safety Report 5102200-4 (Version None)
Quarter: 2006Q3

REPORT INFORMATION
  Report Type: 
  Country: None (occurrence: None)
  Receive Date: 20060912
  Receipt Date: 20060831
  Transmission Date: 20061208
  Serious: Yes (Other)
  Sender: FDA-Public Use
  Company Number: FR-JNJFOC-20060900561

PATIENT
  Age: 72 Year
  Sex: Female

DRUGS (2)
  1. CAELYX [Suspect]
     Indication: BREAST CANCER METASTATIC
     Route: 042
  2. TAREG [Concomitant]
     Indication: HYPERTENSION
     Route: 048

REACTIONS (9)
  - APHTHOUS STOMATITIS [None]
  - PAIN [None]
  - PHARYNGITIS [None]
  - PHOTOSENSITIVITY REACTION [None]
  - PRURITUS [None]
  - SKIN EXFOLIATION [None]
  - SKIN HYPERPIGMENTATION [None]
  - SKIN NECROSIS [None]
  - SKIN ULCER [None]
